FAERS Safety Report 14371076 (Version 2)
Quarter: 2018Q1

REPORT INFORMATION
  Report Type: Spontaneous
  Country: US (occurrence: US)
  Receive Date: 20180110
  Receipt Date: 20180308
  Transmission Date: 20180509
  Serious: No
  Sender: FDA-Public Use
  Company Number: US-PFIZER INC-2018006867

PATIENT
  Age: 20 Year
  Sex: Female
  Weight: 57 kg

DRUGS (4)
  1. MINASTRIN 24 FE [Concomitant]
     Active Substance: ETHINYL ESTRADIOL\NORETHINDRONE ACETATE
     Indication: CONTRACEPTION
     Dosage: 1 DF, 1X/DAY (1 PILL PER NIGHT)
  2. ZOLOFT [Suspect]
     Active Substance: SERTRALINE HYDROCHLORIDE
     Dosage: 175 MG, DAILY, (TAKING IT IN 3 DIFFERENT DOSAGES. A 100MG, 50MG, AND A 25MG TO EQUAL THIS DOSE.)
     Dates: start: 201801
  3. ZOLOFT [Suspect]
     Active Substance: SERTRALINE HYDROCHLORIDE
     Indication: ANXIETY
     Dosage: 200 MG, UNK
     Dates: end: 201705
  4. ZOLOFT [Suspect]
     Active Substance: SERTRALINE HYDROCHLORIDE
     Dosage: 200 MG, UNK
     Dates: start: 201709

REACTIONS (5)
  - Malaise [Unknown]
  - Serum serotonin increased [Unknown]
  - Drug ineffective [Unknown]
  - Nausea [Unknown]
  - Product storage error [Unknown]
